FAERS Safety Report 9501952 (Version 1)
Quarter: 2013Q3

REPORT INFORMATION
  Report Type: Spontaneous
  Country: JP (occurrence: JP)
  Receive Date: 20130905
  Receipt Date: 20130905
  Transmission Date: 20140515
  Serious: Yes (Other)
  Sender: FDA-Public Use
  Company Number: JP-B.I. PHARMACEUTICALS,INC./RIDGEFIELD-2013-BI-27399NB

PATIENT
  Age: 74 Year
  Sex: Male

DRUGS (1)
  1. PRAZAXA [Suspect]
     Route: 048

REACTIONS (4)
  - Cerebral infarction [Unknown]
  - Dizziness [Unknown]
  - Dizziness [Unknown]
  - Anaemia [Unknown]
